FAERS Safety Report 6783955-X (Version None)
Quarter: 2010Q2

REPORT INFORMATION
  Report Type: 
  Country: None (occurrence: None)
  Receive Date: 20100622
  Receipt Date: 20090609
  Transmission Date: 20101027
  Serious: Yes (Disabling)
  Sender: FDA-Public Use
  Company Number: US-BRISTOL-MYERS SQUIBB COMPANY-14663033

PATIENT
  Age: 93 Year
  Sex: Male

DRUGS (3)
  1. SINEMET [Suspect]
     Indication: PROPHYLAXIS
     Dosage: 1DF=25/100MG.MAY09-UNK;UNK-07JUN09. TAB CUT INHALF WHEN SYMPTOMS APPEARED. NOT TAKEN FROM 07JUN09.
     Route: 048
     Dates: start: 20090501, end: 20090607
  2. CELEXA [Concomitant]
     Dates: end: 20090607
  3. EXELON [Concomitant]
     Dates: end: 20090607

REACTIONS (3)
  - PANIC DISORDER [None]
  - PARKINSON'S DISEASE [None]
  - SEDATION [None]
